FAERS Safety Report 11091515 (Version 1)
Quarter: 2015Q2

REPORT INFORMATION
  Report Type: Report from Study
  Country: AU (occurrence: AU)
  Receive Date: 20150505
  Receipt Date: 20150505
  Transmission Date: 20150821
  Serious: Yes (Hospitalization)
  Sender: FDA-Public Use
  Company Number: AU-MYLANLABS-2015M1014923

PATIENT

DRUGS (8)
  1. METFORMIN [Suspect]
     Active Substance: METFORMIN HYDROCHLORIDE
     Route: 048
  2. ATORVASTATIN [Suspect]
     Active Substance: ATORVASTATIN
     Route: 048
  3. IRBESARTAN. [Suspect]
     Active Substance: IRBESARTAN
     Route: 048
  4. LEVOTHYROXINE SODIUM. [Suspect]
     Active Substance: LEVOTHYROXINE SODIUM
     Route: 048
  5. OMEPRAZOLE. [Suspect]
     Active Substance: OMEPRAZOLE
     Route: 048
  6. CARBAMAZEPINE. [Suspect]
     Active Substance: CARBAMAZEPINE
     Route: 048
  7. ASPIRIN                            /00002701/ [Suspect]
     Active Substance: ASPIRIN
     Route: 048
  8. GLICLAZIDE [Suspect]
     Active Substance: GLICLAZIDE
     Route: 048

REACTIONS (5)
  - Hypotension [Unknown]
  - Intentional overdose [Unknown]
  - Hyperlactacidaemia [Unknown]
  - Acidosis [Unknown]
  - Hypoglycaemia [Unknown]
